FAERS Safety Report 10721211 (Version 1)
Quarter: 2015Q1

REPORT INFORMATION
  Report Type: Report from Study
  Country: CA (occurrence: CA)
  Receive Date: 20150119
  Receipt Date: 20150119
  Transmission Date: 20150721
  Serious: Yes (Hospitalization, Other)
  Sender: FDA-Public Use
  Company Number: CA-ABBVIE-15K-028-1331420-00

PATIENT
  Sex: Male
  Weight: 65.83 kg

DRUGS (2)
  1. HUMIRA [Suspect]
     Active Substance: ADALIMUMAB
     Indication: RHEUMATOID ARTHRITIS
     Route: 058
     Dates: start: 20081109, end: 2014
  2. PREDNISONE. [Concomitant]
     Active Substance: PREDNISONE
     Indication: PERIPHERAL SWELLING

REACTIONS (7)
  - Postoperative wound infection [Recovered/Resolved]
  - Peripheral swelling [Not Recovered/Not Resolved]
  - Amnesia [Unknown]
  - Surgery [Unknown]
  - Tremor [Unknown]
  - Injection site pain [Not Recovered/Not Resolved]
  - Injection site bruising [Not Recovered/Not Resolved]

NARRATIVE: CASE EVENT DATE: 2014
